FAERS Safety Report 8329236-4 (Version None)
Quarter: 2012Q2

REPORT INFORMATION
  Report Type: 
  Country: None (occurrence: None)
  Receive Date: 20120502
  Receipt Date: 20120424
  Transmission Date: 20120825
  Serious: Yes (Other)
  Sender: FDA-Public Use
  Company Number: JP-VERTEX PHARMACEUTICALS INC.-AE-2012-003438

PATIENT
  Age: 55 Year
  Sex: Male

DRUGS (11)
  1. TELAVIC (TELAPREVIR) [Suspect]
     Route: 048
     Dates: start: 20120301, end: 20120414
  2. PEG-INTRON [Concomitant]
     Route: 051
     Dates: start: 20120218, end: 20120302
  3. PEG-INTRON [Concomitant]
     Route: 051
     Dates: start: 20120324
  4. PEG-INTRON [Concomitant]
     Route: 051
     Dates: start: 20120303, end: 20120323
  5. XYZAL [Concomitant]
     Route: 048
     Dates: start: 20120121
  6. PEG-INTRON [Concomitant]
     Indication: HEPATITIS C
     Route: 051
     Dates: start: 20120121, end: 20120217
  7. REBETOL [Concomitant]
     Indication: HEPATITIS C
     Route: 048
     Dates: start: 20120121, end: 20120203
  8. REBETOL [Concomitant]
     Route: 048
     Dates: start: 20120311, end: 20120414
  9. TELAVIC (TELAPREVIR) [Suspect]
     Indication: HEPATITIS C
     Route: 048
     Dates: start: 20120121, end: 20120229
  10. REBETOL [Concomitant]
     Route: 048
     Dates: start: 20120415
  11. REBETOL [Concomitant]
     Route: 048
     Dates: start: 20120204, end: 20120310

REACTIONS (3)
  - PLATELET COUNT DECREASED [None]
  - DEHYDRATION [None]
  - HEPATIC ENCEPHALOPATHY [None]
